FAERS Safety Report 4619391-1 (Version None)
Quarter: 2005Q1

REPORT INFORMATION
  Report Type: 
  Country: None (occurrence: None)
  Receive Date: 20050325
  Receipt Date: 20050316
  Transmission Date: 20050727
  Serious: Yes (Other)
  Sender: FDA-Public Use
  Company Number: JP-BRISTOL-MYERS SQUIBB COMPANY-12907838

PATIENT
  Age: 70 Year
  Sex: Male

DRUGS (4)
  1. GATIFLO TABS 100 MG [Suspect]
     Indication: MYCOBACTERIUM AVIUM COMPLEX INFECTION
     Route: 048
     Dates: start: 20040101, end: 20050313
  2. CLARITHROMYCIN [Concomitant]
     Route: 048
  3. RIFAMPICIN [Concomitant]
     Route: 048
  4. ENSURE [Concomitant]

REACTIONS (1)
  - HYPOGLYCAEMIA [None]
